FAERS Safety Report 4515994-3 (Version None)
Quarter: 2004Q4

REPORT INFORMATION
  Report Type: 
  Country: None (occurrence: None)
  Receive Date: 20041129
  Receipt Date: 20041117
  Transmission Date: 20050328
  Serious: Yes (Other)
  Sender: FDA-Public Use
  Company Number: 2004094758

PATIENT
  Age: 37 Year
  Sex: Male

DRUGS (2)
  1. DOSTINEX [Suspect]
     Indication: PROLACTINOMA
     Dosage: (0.5 MG, TWICE A WEEK), ORAL
     Route: 048
     Dates: start: 20040701
  2. FLUNARIZINE (FLUNARIZINE) [Concomitant]

REACTIONS (2)
  - HORNER'S SYNDROME [None]
  - TEMPORAL ARTERITIS [None]
